FAERS Safety Report 25951245 (Version 2)
Quarter: 2025Q4

REPORT INFORMATION
  Report Type: Spontaneous
  Country: US (occurrence: US)
  Receive Date: 20251023
  Receipt Date: 20251111
  Transmission Date: 20260117
  Serious: Yes (Hospitalization, Other)
  Sender: CSL BEHRING
  Company Number: US-BEH-2025221992

PATIENT
  Age: 82 Year
  Sex: Female

DRUGS (1)
  1. HIZENTRA [Suspect]
     Active Substance: HUMAN IMMUNOGLOBULIN G
     Indication: Immunodeficiency common variable
     Dosage: 10 G/ 50 ML QW
     Route: 058

REACTIONS (6)
  - Deep vein thrombosis [Unknown]
  - Thrombosis [Unknown]
  - Diarrhoea [Unknown]
  - Nausea [Unknown]
  - Cough [Unknown]
  - Infusion site rash [Unknown]

NARRATIVE: CASE EVENT DATE: 20250414
